FAERS Safety Report 26198134 (Version 1)
Quarter: 2025Q4

REPORT INFORMATION
  Report Type: Other
  Country: CA (occurrence: CA)
  Receive Date: 20251224
  Receipt Date: 20251224
  Transmission Date: 20260118
  Serious: Yes (Other)
  Sender: PFIZER
  Company Number: CA-PFIZER INC-202500247609

PATIENT
  Sex: Female

DRUGS (4)
  1. ADALIMUMAB [Suspect]
     Active Substance: ADALIMUMAB
     Dosage: UNK (SOLUTION SUBCUTANEOUS)
  2. INFLIXIMAB [Suspect]
     Active Substance: INFLIXIMAB
  3. ERELZI [Suspect]
     Active Substance: ETANERCEPT-SZZS
  4. TRUXIMA [Suspect]
     Active Substance: RITUXIMAB-ABBS
     Dosage: UNK (SINGLE-DOSE VIAL - 10 MG/ML, SOLUTION INTRAVENOUS)

REACTIONS (2)
  - Foetal death [Unknown]
  - Maternal exposure timing unspecified [Unknown]
